FAERS Safety Report 10055234 (Version 1)
Quarter: 2014Q2

REPORT INFORMATION
  Report Type: Spontaneous
  Country: JP (occurrence: JP)
  Receive Date: 20140403
  Receipt Date: 20140403
  Transmission Date: 20141212
  Serious: Yes (Hospitalization)
  Sender: FDA-Public Use
  Company Number: JP-PFIZER INC-2014091715

PATIENT
  Age: 62 Year
  Sex: Female
  Weight: 48 kg

DRUGS (17)
  1. CAMPTO [Suspect]
     Indication: RECTAL CANCER
     Dosage: 180 MG/M2 (258.3 MG), 1X/DAY
     Route: 041
     Dates: start: 20140304
  2. LEVOLEUCOVORIN CALCIUM [Suspect]
     Indication: RECTAL CANCER
     Dosage: 200 MG/M2 (287 MG), 1X/DAY
     Route: 041
     Dates: start: 20140304
  3. AFLIBERCEPT/AVE0005 [Suspect]
     Indication: RECTAL CANCER
     Dosage: 4 MG/KG, 1X/DAY
     Route: 041
     Dates: start: 20140304
  4. 5-FU [Suspect]
     Indication: RECTAL CANCER
     Dosage: 400 MG/M2 (574 MG), 1X/DAY
     Route: 040
     Dates: start: 20140304
  5. 5-FU [Suspect]
     Dosage: 2400 MG/M2 (3444 MG), D1-2 (ONCE IN 2 DAYS)
     Route: 041
     Dates: start: 20140304
  6. LYRICA [Concomitant]
     Dosage: UNK
     Dates: start: 20131129
  7. LOXOPROFEN [Concomitant]
     Dosage: UNK
     Dates: start: 201311
  8. TAKEPRON [Concomitant]
     Dosage: UNK
     Dates: start: 20131129
  9. METHYCOBAL [Concomitant]
     Dosage: UNK
     Dates: start: 20131129
  10. OXINORM (OXYCODONE HYDROCHLORIDE) [Concomitant]
     Dosage: UNK
     Dates: start: 20131203
  11. OXYCONTIN [Concomitant]
     Dosage: UNK
     Dates: start: 20131205
  12. AZUNOL [Concomitant]
     Dosage: UNK
     Dates: start: 20140309
  13. BIOFERMIN [Concomitant]
     Dosage: UNK
     Dates: start: 20140310
  14. ELNEOPA NO.1 [Concomitant]
     Dosage: UNK
     Dates: start: 20140311
  15. CEFCAPENE PIVOXIL HYDROCHLORIDE HYDRATE [Concomitant]
     Dosage: UNK
     Dates: start: 20140314
  16. CYMBALTA [Concomitant]
     Dosage: UNK
     Dates: start: 20140317
  17. OXIFAST [Concomitant]
     Dosage: UNK
     Dates: start: 20140318

REACTIONS (3)
  - Female genital tract fistula [Not Recovered/Not Resolved]
  - Diarrhoea [Recovered/Resolved]
  - Urinary tract infection [Unknown]
